FAERS Safety Report 22322672 (Version 1)
Quarter: 2023Q2

REPORT INFORMATION
  Report Type: Spontaneous
  Country: US (occurrence: US)
  Receive Date: 20230516
  Receipt Date: 20230516
  Transmission Date: 20230721
  Serious: No
  Sender: FDA-Public Use
  Company Number: US-Axsome Therapeutics, Inc.-AXS202211-000114

PATIENT
  Age: 34 Year
  Sex: Female
  Weight: 58.6 kg

DRUGS (5)
  1. SUNOSI [Suspect]
     Active Substance: SOLRIAMFETOL
     Indication: Narcolepsy
     Dosage: UNK
  2. MODAFINIL [Concomitant]
     Active Substance: MODAFINIL
     Indication: Product used for unknown indication
     Dosage: TAKE 1 TABLET (100 MG TOTAL) BY MOUTH TWO TIMES A DAY, MAX DAILY AMOUNT:200MG
     Route: 048
     Dates: start: 20221021
  3. Atrovostatin [Concomitant]
     Indication: Product used for unknown indication
     Dosage: 40 MG
  4. KARIVA [Concomitant]
     Active Substance: DESOGESTREL\ETHINYL ESTRADIOL
     Indication: Product used for unknown indication
     Dosage: 0.15-0.02/0.01 MG (21/5) PER TABLET
     Dates: start: 20220624
  5. FLUOXETINE [Concomitant]
     Active Substance: FLUOXETINE HYDROCHLORIDE
     Indication: Product used for unknown indication
     Dosage: 20 MG TABLETS
     Route: 048
     Dates: start: 20220815

REACTIONS (2)
  - Headache [Unknown]
  - Treatment failure [Unknown]
